FAERS Safety Report 8119833-3 (Version None)
Quarter: 2012Q1

REPORT INFORMATION
  Report Type: 
  Country: None (occurrence: None)
  Receive Date: 20120207
  Receipt Date: 20120131
  Transmission Date: 20120608
  Serious: Yes (Hospitalization)
  Sender: FDA-Public Use
  Company Number: GB-ABBOTT-12P-167-0900129-00

PATIENT
  Age: 78 Year
  Sex: Female
  Weight: 67.8 kg

DRUGS (4)
  1. SIMVASTATIN [Concomitant]
     Indication: PRODUCT USED FOR UNKNOWN INDICATION
  2. ADCAL-D3 [Concomitant]
     Indication: PRODUCT USED FOR UNKNOWN INDICATION
  3. HUMIRA [Suspect]
     Indication: RHEUMATOID ARTHRITIS
     Route: 058
     Dates: start: 20060602
  4. ASPIRIN [Concomitant]
     Indication: PRODUCT USED FOR UNKNOWN INDICATION

REACTIONS (7)
  - GASTROINTESTINAL DISORDER [None]
  - BLADDER DISORDER [None]
  - VITAL CAPACITY DECREASED [None]
  - MUSCULAR WEAKNESS [None]
  - GUILLAIN-BARRE SYNDROME [None]
  - PARAESTHESIA [None]
  - RESPIRATORY DISORDER [None]
